FAERS Safety Report 5794609-0 (Version None)
Quarter: 2008Q2

REPORT INFORMATION
  Report Type: 
  Country: None (occurrence: None)
  Receive Date: 20080627
  Receipt Date: 20080627
  Transmission Date: 20081010
  Serious: Yes (Hospitalization)
  Sender: FDA-Public Use
  Company Number: None

PATIENT
  Sex: Female
  Weight: 54.4316 kg

DRUGS (10)
  1. METOPROLOL TARTRATE [Suspect]
     Indication: HYPERTENSION
     Dosage: 50MG PO BID  PRIOR TO ADMISSION
     Route: 048
  2. COUMADIN [Concomitant]
  3. DIGOXIN [Concomitant]
  4. LOVASTATIN [Concomitant]
  5. ALDACTONE [Concomitant]
  6. COLACE [Concomitant]
  7. LASIX [Concomitant]
  8. SLO MAG [Concomitant]
  9. FOSINOPRIL SODIUM [Concomitant]
  10. VITAMIN B-12 [Concomitant]

REACTIONS (6)
  - BRADYCARDIA [None]
  - CONTUSION [None]
  - HEAD INJURY [None]
  - INCORRECT DOSE ADMINISTERED [None]
  - LACERATION [None]
  - SYNCOPE [None]
